FAERS Safety Report 15843416 (Version 1)
Quarter: 2019Q1

REPORT INFORMATION
  Report Type: Spontaneous
  Country: US (occurrence: US)
  Receive Date: 20190118
  Receipt Date: 20190118
  Transmission Date: 20190417
  Serious: No
  Sender: FDA-Public Use
  Company Number: US-TEVA-2018-US-991823

PATIENT
  Sex: Female

DRUGS (2)
  1. ACCORD ANASTROZOLE [Suspect]
     Active Substance: ANASTROZOLE
     Route: 065
  2. ANASTROZOLE. [Suspect]
     Active Substance: ANASTROZOLE
     Indication: BREAST CANCER
     Route: 065

REACTIONS (3)
  - Malaise [Unknown]
  - Pain [Unknown]
  - Abdominal discomfort [Unknown]
